FAERS Safety Report 8610021-0 (Version None)
Quarter: 2012Q3

REPORT INFORMATION
  Report Type: 
  Country: None (occurrence: None)
  Receive Date: 20120822
  Receipt Date: 20120803
  Transmission Date: 20120928
  Serious: No
  Sender: FDA-Public Use
  Company Number: JP-009507513-1206USA00386

PATIENT
  Age: 80 Year
  Sex: Male
  Weight: 49.9 kg

DRUGS (11)
  1. SULFAMETHOXAZOLE AND TRIMETHOPRIM [Concomitant]
     Route: 048
     Dates: start: 20120427, end: 20120518
  2. FENTORA [Suspect]
     Indication: CANCER PAIN
     Dosage: 1 MG, QD
     Route: 061
     Dates: start: 20120430
  3. FAMOTIDINE [Suspect]
     Indication: PROPHYLAXIS
     Dosage: 20 MG, BID
     Route: 048
     Dates: start: 20120502, end: 20120518
  4. ITRACONAZOLE [Concomitant]
     Dates: start: 20120427, end: 20120518
  5. RITUXAN [Concomitant]
     Dates: start: 20120501
  6. OXYCODONE HYDROCHLORIDE [Suspect]
     Indication: CANCER PAIN
     Dosage: 5 MG, PRN
     Route: 048
     Dates: start: 20120426
  7. THERARUBICIN [Concomitant]
     Dates: start: 20120502
  8. CYCLOPHOSPHAMIDE [Concomitant]
     Dates: start: 20120502
  9. ACETAMINOPHEN [Concomitant]
     Route: 048
     Dates: start: 20120417
  10. ONCOVIN [Concomitant]
     Dates: start: 20120502
  11. PREDONINE [Concomitant]
     Route: 048
     Dates: start: 20120502

REACTIONS (2)
  - RASH [None]
  - DYSKINESIA [None]
